FAERS Safety Report 23213295 (Version 2)
Quarter: 2023Q4

REPORT INFORMATION
  Report Type: Report from Study
  Country: US (occurrence: US)
  Receive Date: 20231121
  Receipt Date: 20231220
  Transmission Date: 20240110
  Serious: No
  Sender: FDA-Public Use
  Company Number: US-002147023-NVSC2023US246726

PATIENT
  Sex: Female

DRUGS (1)
  1. KISQALI [Suspect]
     Active Substance: RIBOCICLIB
     Indication: Breast cancer
     Dosage: 600 MG, QD
     Route: 048
     Dates: start: 202311

REACTIONS (9)
  - Rash [Unknown]
  - Gastrooesophageal reflux disease [Recovering/Resolving]
  - Paraesthesia [Unknown]
  - Burning sensation [Unknown]
  - Post herpetic neuralgia [Unknown]
  - Rosacea [Unknown]
  - Product dose omission issue [Unknown]
  - Alopecia [Unknown]
  - Herpes zoster [Unknown]
